FAERS Safety Report 8230333-2 (Version None)
Quarter: 2012Q1

REPORT INFORMATION
  Report Type: 
  Country: None (occurrence: None)
  Receive Date: 20120320
  Receipt Date: 20120305
  Transmission Date: 20120608
  Serious: Yes (Other)
  Sender: FDA-Public Use
  Company Number: JPI-P-020225

PATIENT
  Age: 49 Year
  Sex: Female

DRUGS (3)
  1. XYREM [Suspect]
     Indication: PRODUCT USED FOR UNKNOWN INDICATION
     Dosage: (UNKNOWN), ORAL 9 GM (4.5 GM, 2 IN 1 D), ORAL
     Route: 048
     Dates: start: 20060101
  2. HYDROCODONE BITARTRATE AND ACETAMINOPHEN [Suspect]
     Indication: SHOULDER OPERATION
     Dosage: (UNKNOWN), UNKNOWN
     Dates: start: 20060301
  3. OXYCODONE HCL [Suspect]
     Indication: SHOULDER OPERATION
     Dosage: (UNKNOWN), UNKNOWN
     Dates: start: 20060301

REACTIONS (3)
  - NAUSEA [None]
  - BLOOD URINE PRESENT [None]
  - ABDOMINAL PAIN UPPER [None]
